FAERS Safety Report 17458664 (Version 1)
Quarter: 2020Q1

REPORT INFORMATION
  Report Type: Spontaneous
  Country: US (occurrence: US)
  Receive Date: 20200225
  Receipt Date: 20200225
  Transmission Date: 20200409
  Serious: No
  Sender: FDA-Public Use
  Company Number: US-IGSA-SR10007722

PATIENT
  Age: 84 Year
  Sex: Male
  Weight: 88 kg

DRUGS (10)
  1. DILTIAZEM. [Concomitant]
     Active Substance: DILTIAZEM
  2. BROVANA [Concomitant]
     Active Substance: ARFORMOTEROL TARTRATE
  3. BUDESONIDE. [Concomitant]
     Active Substance: BUDESONIDE
  4. WARFARIN [Concomitant]
     Active Substance: WARFARIN
  5. PROLASTIN-C LIQUID [Suspect]
     Active Substance: .ALPHA.1-PROTEINASE INHIBITOR HUMAN
     Indication: ALPHA-1 ANTI-TRYPSIN DEFICIENCY
     Dosage: 5280 MG, Q.WK.
     Route: 042
     Dates: start: 20190115
  6. PROLASTIN-C LIQUID [Suspect]
     Active Substance: .ALPHA.1-PROTEINASE INHIBITOR HUMAN
     Dosage: 5280 MG, Q.WK.
     Route: 042
     Dates: start: 20190122
  7. KLOR-CON [Concomitant]
     Active Substance: POTASSIUM CHLORIDE
  8. DIGOXIN. [Concomitant]
     Active Substance: DIGOXIN
  9. FUROSEMIDE. [Concomitant]
     Active Substance: FUROSEMIDE
  10. LEVOTHYROXINE. [Concomitant]
     Active Substance: LEVOTHYROXINE

REACTIONS (2)
  - Malaise [Recovered/Resolved]
  - Fatigue [Recovered/Resolved]

NARRATIVE: CASE EVENT DATE: 20190115
